FAERS Safety Report 12413881 (Version 3)
Quarter: 2016Q3

REPORT INFORMATION
  Report Type: Spontaneous
  Country: JP (occurrence: JP)
  Receive Date: 20160527
  Receipt Date: 20160928
  Transmission Date: 20161109
  Serious: Yes (Other)
  Sender: FDA-Public Use
  Company Number: JP-GILEAD-2016-0215994

PATIENT
  Age: 47 Year
  Sex: Male

DRUGS (7)
  1. TENOFOVIR DISOPROXIL FUMARATE. [Suspect]
     Active Substance: TENOFOVIR DISOPROXIL FUMARATE
     Indication: HEPATIC CIRRHOSIS
  2. CEFTRIAXONE SODIUM HYDRATE [Suspect]
     Active Substance: CEFTRIAXONE SODIUM
     Indication: PYELONEPHRITIS
     Dosage: 2 G, 1D
     Route: 041
     Dates: start: 20160420, end: 20160422
  3. CEFTRIAXONE SODIUM HYDRATE [Suspect]
     Active Substance: CEFTRIAXONE SODIUM
     Indication: PROSTATITIS
  4. GRACEVIT [Concomitant]
     Active Substance: SITAFLOXACIN
     Indication: PYELONEPHRITIS
     Dosage: 100 MG, 1D
     Dates: start: 20160423, end: 20160424
  5. TENOFOVIR DISOPROXIL FUMARATE. [Suspect]
     Active Substance: TENOFOVIR DISOPROXIL FUMARATE
     Indication: CHRONIC HEPATITIS B
     Dosage: 300 MG, QD
     Route: 048
     Dates: start: 20160401, end: 20160425
  6. GRACEVIT [Concomitant]
     Active Substance: SITAFLOXACIN
     Indication: PROSTATITIS
  7. TACROLIMUS HYDRATE [Concomitant]
     Active Substance: TACROLIMUS
     Dosage: 1 MG, UNK
     Dates: start: 201602

REACTIONS (7)
  - Ascites [Recovered/Resolved]
  - Urine output decreased [Recovered/Resolved]
  - Prostatitis [Recovered/Resolved]
  - Oedema [Recovered/Resolved]
  - Pyelonephritis acute [Recovered/Resolved]
  - Urinary retention [Recovered/Resolved]
  - Oedema peripheral [Recovered/Resolved]

NARRATIVE: CASE EVENT DATE: 201604
